FAERS Safety Report 12823969 (Version 1)
Quarter: 2016Q4

REPORT INFORMATION
  Report Type: Spontaneous
  Country: CH (occurrence: CH)
  Receive Date: 20161007
  Receipt Date: 20161007
  Transmission Date: 20170207
  Serious: Yes (Hospitalization, Other)
  Sender: FDA-Public Use
  Company Number: CH-009507513-1609CHE004957

PATIENT
  Age: 20 Year
  Sex: Female
  Weight: 47 kg

DRUGS (1)
  1. IMPLANON [Suspect]
     Active Substance: ETONOGESTREL
     Indication: CONTRACEPTION
     Dosage: 1 IMPLANT, UNK
     Route: 059
     Dates: start: 20140521, end: 20151112

REACTIONS (6)
  - Vaginal haemorrhage [Recovered/Resolved]
  - Serum ferritin decreased [Recovered/Resolved]
  - Soft tissue atrophy [Recovered/Resolved]
  - Uterine cervix stenosis [Recovered/Resolved]
  - Vulvovaginal pain [Recovered/Resolved]
  - Uterine haemorrhage [Recovered/Resolved]

NARRATIVE: CASE EVENT DATE: 20150505
